FAERS Safety Report 23629361 (Version 1)
Quarter: 2024Q1

REPORT INFORMATION
  Report Type: Spontaneous
  Country: US (occurrence: US)
  Receive Date: 20240313
  Receipt Date: 20240313
  Transmission Date: 20240410
  Serious: No
  Sender: FDA-Public Use
  Company Number: US-VISTAPHARM-2023-US-031476

PATIENT
  Sex: 0

DRUGS (1)
  1. MYCOPHENOLATE MOFETIL [Suspect]
     Active Substance: MYCOPHENOLATE MOFETIL
     Indication: Product used for unknown indication
     Dosage: UNK
     Route: 048
     Dates: start: 20230717

REACTIONS (2)
  - Abdominal discomfort [Unknown]
  - Diarrhoea [Unknown]

NARRATIVE: CASE EVENT DATE: 20230701
